FAERS Safety Report 18101152 (Version 1)
Quarter: 2020Q3

REPORT INFORMATION
  Report Type: Spontaneous
  Country: US (occurrence: US)
  Receive Date: 20200801
  Receipt Date: 20200801
  Transmission Date: 20201103
  Serious: Yes (Hospitalization, Other)
  Sender: FDA-Public Use
  Company Number: US-TAKEDA-2020TUS032762

PATIENT
  Age: 38 Year
  Sex: Female

DRUGS (2)
  1. ENTYVIO [Suspect]
     Active Substance: VEDOLIZUMAB
     Indication: CROHN^S DISEASE
     Dosage: UNK
     Route: 065
     Dates: start: 2017
  2. CLINDAMYCIN. [Suspect]
     Active Substance: CLINDAMYCIN
     Indication: VAGINAL INFECTION
     Dosage: UNK UNK, QD
     Route: 067

REACTIONS (5)
  - Therapeutic response decreased [Unknown]
  - Vaginal infection [Unknown]
  - Off label use [Unknown]
  - Intestinal obstruction [Unknown]
  - Diarrhoea [Unknown]
